FAERS Safety Report 14999782 (Version 1)
Quarter: 2018Q2

REPORT INFORMATION
  Report Type: Spontaneous
  Country: US (occurrence: US)
  Receive Date: 20180523
  Receipt Date: 20180523
  Transmission Date: 20180711
  Serious: Yes (Disabling)
  Sender: FDA-Public Use
  Company Number: None

PATIENT
  Age: 64 Year
  Sex: Male
  Weight: 99 kg

DRUGS (3)
  1. AMLODIPINE [Suspect]
     Active Substance: AMLODIPINE BESYLATE
     Indication: HYPERTENSION
     Dosage: ?          QUANTITY:1 TABLET
     Route: 048
  2. METOPROLOL. [Concomitant]
     Active Substance: METOPROLOL
  3. ONE A DAY VITAMINS [Concomitant]

REACTIONS (7)
  - Systemic lupus erythematosus [None]
  - Gait disturbance [None]
  - Drug ineffective [None]
  - Impaired work ability [None]
  - Insomnia [None]
  - Eating disorder [None]
  - Quality of life decreased [None]

NARRATIVE: CASE EVENT DATE: 20170323
